FAERS Safety Report 13630501 (Version 1)
Quarter: 2017Q2

REPORT INFORMATION
  Report Type: Report from Study
  Country: BR (occurrence: BR)
  Receive Date: 20170608
  Receipt Date: 20170608
  Transmission Date: 20170830
  Serious: Yes (Hospitalization, Other)
  Sender: FDA-Public Use
  Company Number: PHHY2017BR083161

PATIENT
  Sex: Male
  Weight: 70 kg

DRUGS (1)
  1. TRILEPTAL [Suspect]
     Active Substance: OXCARBAZEPINE
     Indication: SEIZURE
     Dosage: 7.5 ML, BID
     Route: 048
     Dates: start: 200107

REACTIONS (6)
  - Bone density decreased [Unknown]
  - Ligament sprain [Unknown]
  - Seizure [Recovering/Resolving]
  - Fall [Unknown]
  - Condition aggravated [Recovering/Resolving]
  - Spinal fracture [Recovering/Resolving]
